FAERS Safety Report 4901694-4 (Version None)
Quarter: 2006Q1

REPORT INFORMATION
  Report Type: 
  Country: None (occurrence: None)
  Receive Date: 20060206
  Receipt Date: 20051110
  Transmission Date: 20060701
  Serious: Yes (Hospitalization)
  Sender: FDA-Public Use
  Company Number: US-BRISTOL-MYERS SQUIBB COMPANY-13176573

PATIENT
  Age: 58 Year
  Sex: Female
  Weight: 80 kg

DRUGS (6)
  1. TAXOL [Suspect]
     Indication: BREAST CANCER
     Route: 042
     Dates: start: 20051027, end: 20051027
  2. DECADRON PHOSPHATE [Concomitant]
     Indication: PREMEDICATION
  3. EMEND [Concomitant]
     Indication: PREMEDICATION
  4. CLARITIN [Concomitant]
  5. LIPITOR [Concomitant]
  6. PROTONIX [Concomitant]

REACTIONS (1)
  - PYREXIA [None]
